FAERS Safety Report 8404529-0 (Version None)
Quarter: 2012Q2

REPORT INFORMATION
  Report Type: 
  Country: None (occurrence: None)
  Receive Date: 20120601
  Receipt Date: 20120523
  Transmission Date: 20120825
  Serious: Yes (Hospitalization)
  Sender: FDA-Public Use
  Company Number: JP-B.I. PHARMACEUTICALS,INC./RIDGEFIELD-2012-BP-06916NB

PATIENT
  Sex: Female
  Weight: 44 kg

DRUGS (8)
  1. ELNEOPA NO.2 [Concomitant]
     Route: 065
  2. MAGMITT [Concomitant]
     Indication: CONSTIPATION PROPHYLAXIS
     Dosage: 990 MG
     Route: 048
     Dates: start: 20120218
  3. FENTANYL CITRATE [Concomitant]
     Indication: CANCER PAIN
     Dosage: 2 MG
     Route: 065
     Dates: start: 20120309
  4. OXINORM [Concomitant]
     Indication: CANCER PAIN
     Dosage: 10 MG
     Route: 065
  5. MOBIC [Suspect]
     Indication: CANCER PAIN
     Dosage: 15 MG
     Route: 048
     Dates: start: 20120229, end: 20120319
  6. LENDORMIN D TABLETS [Concomitant]
  7. METILON [Concomitant]
     Route: 065
  8. LANSOPRAZOLE [Concomitant]
     Dosage: 15 MG
     Route: 048
     Dates: start: 20120223

REACTIONS (1)
  - HEPATIC FUNCTION ABNORMAL [None]
